FAERS Safety Report 15290575 (Version 1)
Quarter: 2018Q3

REPORT INFORMATION
  Report Type: Spontaneous
  Country: US (occurrence: US)
  Receive Date: 20180805
  Receipt Date: 20180805
  Transmission Date: 20181010
  Serious: Yes (Disabling)
  Sender: FDA-Public Use
  Company Number: None

PATIENT
  Age: 64 Year
  Sex: Female
  Weight: 44.55 kg

DRUGS (8)
  1. CLINDAMYCIN HCL 300 MG [Suspect]
     Active Substance: CLINDAMYCIN HYDROCHLORIDE
     Indication: CELLULITIS
     Dosage: ?          QUANTITY:1 CAPSULE(S);?
     Route: 048
     Dates: start: 20180625, end: 20180705
  2. PROBIOTIC [Concomitant]
     Active Substance: PROBIOTICS NOS
  3. CALCIUM [Concomitant]
     Active Substance: CALCIUM
  4. BIOTIN [Concomitant]
     Active Substance: BIOTIN
  5. FISH OIL [Concomitant]
     Active Substance: FISH OIL
  6. ATORVASTATIN [Concomitant]
     Active Substance: ATORVASTATIN
  7. MULTIIVITAMIN [Concomitant]
  8. LOW DOSE ASPIRIN [Concomitant]
     Active Substance: ASPIRIN

REACTIONS (8)
  - Abdominal pain upper [None]
  - Chills [None]
  - Somnolence [None]
  - Fatigue [None]
  - Pyrexia [None]
  - Weight decreased [None]
  - Clostridium test positive [None]
  - Diarrhoea [None]

NARRATIVE: CASE EVENT DATE: 20180716
